FAERS Safety Report 12510193 (Version 1)
Quarter: 2016Q2

REPORT INFORMATION
  Report Type: Other
  Country: US (occurrence: US)
  Receive Date: 20160629
  Receipt Date: 20160629
  Transmission Date: 20160815
  Serious: Yes (Hospitalization)
  Sender: FDA-Public Use
  Company Number: US-ENDO PHARMACEUTICALS INC-2016-004130

PATIENT
  Age: 62 Year
  Sex: Male

DRUGS (1)
  1. PREDNISONE TABLETS [Suspect]
     Active Substance: PREDNISONE
     Indication: DERMATITIS CONTACT
     Dosage: 100MG ON THE FIRST DAY, FOLLOWED BY A 10-DAY TAPER
     Route: 065

REACTIONS (2)
  - Steatohepatitis [Recovered/Resolved]
  - Acute hepatic failure [Recovered/Resolved]
